FAERS Safety Report 6994964-X (Version None)
Quarter: 2010Q3

REPORT INFORMATION
  Report Type: 
  Country: None (occurrence: None)
  Receive Date: 20100917
  Receipt Date: 20090819
  Transmission Date: 20110219
  Serious: Yes (Other)
  Sender: FDA-Public Use
  Company Number: HQWYE582312DEC03

PATIENT
  Sex: Female

DRUGS (3)
  1. PREMPRO [Suspect]
     Dosage: UNSPECIFIED
     Route: 048
     Dates: start: 19950101, end: 20020101
  2. PROVERA [Suspect]
     Dosage: UNSPECIFIED
     Route: 048
     Dates: start: 19950101, end: 20020101
  3. PREMARIN [Suspect]
     Dosage: UNSPECIFIED
     Route: 048
     Dates: start: 19940101, end: 20020101

REACTIONS (1)
  - BREAST CANCER FEMALE [None]
